FAERS Safety Report 4785536-6 (Version None)
Quarter: 2005Q4

REPORT INFORMATION
  Report Type: 
  Country: None (occurrence: None)
  Receive Date: 20051003
  Receipt Date: 20050926
  Transmission Date: 20060501
  Serious: Yes (Death)
  Sender: FDA-Public Use
  Company Number: 200513142FR

PATIENT
  Age: 90 Year
  Sex: Female

DRUGS (4)
  1. TARGOCID [Suspect]
     Indication: SEPSIS
     Route: 042
     Dates: start: 20050704
  2. VANCOMYCIN [Suspect]
     Indication: SEPSIS
     Route: 042
     Dates: start: 20050620, end: 20050703
  3. RIFADIN [Suspect]
     Indication: SEPSIS
     Route: 048
     Dates: start: 20050701
  4. NETROMYCIN [Concomitant]
     Indication: SEPSIS
     Route: 042
     Dates: start: 20050620, end: 20050703

REACTIONS (6)
  - CHOLESTASIS [None]
  - DRUG RASH WITH EOSINOPHILIA AND SYSTEMIC SYMPTOMS [None]
  - EOSINOPHILIA [None]
  - HYPERSENSITIVITY [None]
  - RASH MACULO-PAPULAR [None]
  - RENAL FAILURE [None]
